FAERS Safety Report 4798897-9 (Version None)
Quarter: 2005Q4

REPORT INFORMATION
  Report Type: 
  Country: None (occurrence: None)
  Receive Date: 20051014
  Receipt Date: 20051007
  Transmission Date: 20060501
  Serious: Yes (Death, Hospitalization, Other)
  Sender: FDA-Public Use
  Company Number: DE-BRISTOL-MYERS SQUIBB COMPANY-13137591

PATIENT
  Age: 63 Year
  Sex: Male
  Weight: 111 kg

DRUGS (6)
  1. SUSTIVA [Suspect]
     Indication: HIV INFECTION
     Dates: start: 19990601, end: 20030730
  2. ZERIT [Suspect]
     Indication: HIV INFECTION
     Dates: start: 19980226, end: 19990601
  3. LAMIVUDINE [Concomitant]
     Indication: HIV INFECTION
     Dates: start: 19980226
  4. CIPROBAY [Concomitant]
     Indication: ANTIBIOTIC PROPHYLAXIS
     Dates: start: 19980226
  5. INDINAVIR [Concomitant]
     Dates: start: 19990601, end: 20011211
  6. RITONAVIR [Concomitant]
     Indication: HIV INFECTION
     Dates: start: 19990601, end: 20011211

REACTIONS (7)
  - ANAL CANCER [None]
  - DYSGEUSIA [None]
  - LIPODYSTROPHY ACQUIRED [None]
  - METASTASES TO LIVER [None]
  - PNEUMONIA [None]
  - SKIN CANCER [None]
  - TESTICULAR FAILURE [None]
